FAERS Safety Report 18497502 (Version 3)
Quarter: 2020Q4

REPORT INFORMATION
  Report Type: Spontaneous
  Country: AT (occurrence: AT)
  Receive Date: 20201112
  Receipt Date: 20201117
  Transmission Date: 20210114
  Serious: Yes (Other)
  Sender: FDA-Public Use
  Company Number: AT-PFIZER INC-2020447526

PATIENT
  Age: 71 Year
  Sex: Male

DRUGS (2)
  1. PANTOPRAZOLE [Suspect]
     Active Substance: PANTOPRAZOLE
     Dosage: UNK
     Route: 065
  2. GEWACALM [Interacting]
     Active Substance: DIAZEPAM
     Indication: DEPRESSION
     Dosage: UNK UNK, QD
     Route: 065

REACTIONS (5)
  - Drug interaction [Unknown]
  - Respiratory disorder [Unknown]
  - Choking [Unknown]
  - Intentional overdose [Unknown]
  - Off label use [Unknown]
